FAERS Safety Report 16624986 (Version 1)
Quarter: 2019Q3

REPORT INFORMATION
  Report Type: Spontaneous
  Country: US (occurrence: US)
  Receive Date: 20190724
  Receipt Date: 20190724
  Transmission Date: 20191004
  Serious: No
  Sender: FDA-Public Use
  Company Number: US-MYLANLABS-2019M1064069

PATIENT
  Sex: Female
  Weight: 63.49 kg

DRUGS (1)
  1. ESTRADIOL VAGINAL CREAM USP [Suspect]
     Active Substance: ESTRADIOL
     Indication: VULVOVAGINAL DRYNESS
     Dosage: 1 GRAM (1-2 TIMES WEEKLY )
     Route: 067

REACTIONS (1)
  - Overdose [Not Recovered/Not Resolved]
